FAERS Safety Report 4360753-8 (Version None)
Quarter: 2004Q2

REPORT INFORMATION
  Report Type: 
  Country: None (occurrence: None)
  Receive Date: 20040519
  Receipt Date: 20040519
  Transmission Date: 20050107
  Serious: Yes (Other)
  Sender: FDA-Public Use
  Company Number: None

PATIENT
  Age: 79 Year
  Sex: Female

DRUGS (2)
  1. FLUORESCEIN [Suspect]
     Indication: ANGIOGRAM
     Dosage: 5 ML IVP
     Route: 042
  2. FLUORESCEIN [Concomitant]

REACTIONS (6)
  - ASTHENIA [None]
  - CHEST DISCOMFORT [None]
  - DIZZINESS [None]
  - NAUSEA [None]
  - STOMACH DISCOMFORT [None]
  - SYNCOPE [None]
